FAERS Safety Report 7027726-8 (Version None)
Quarter: 2010Q4

REPORT INFORMATION
  Report Type: 
  Country: None (occurrence: None)
  Receive Date: 20101004
  Receipt Date: 20100927
  Transmission Date: 20110411
  Serious: Yes (Death, Hospitalization)
  Sender: FDA-Public Use
  Company Number: US-AMGEN-KDL442254

PATIENT
  Sex: Female
  Weight: 56.8 kg

DRUGS (1)
  1. PROCRIT [Suspect]
     Indication: ANAEMIA
     Dates: start: 20090101, end: 20100920

REACTIONS (3)
  - CARDIAC ARREST [None]
  - RESPIRATORY FAILURE [None]
  - SUBDURAL HAEMORRHAGE [None]
